FAERS Safety Report 11030898 (Version 2)
Quarter: 2015Q2

REPORT INFORMATION
  Report Type: Spontaneous
  Country: ES (occurrence: ES)
  Receive Date: 20150415
  Receipt Date: 20150417
  Transmission Date: 20150821
  Serious: Yes (Other)
  Sender: FDA-Public Use
  Company Number: ES-EMD SERONO-E2B_80009728

PATIENT
  Age: 6 Year
  Sex: Female
  Weight: 159 kg

DRUGS (4)
  1. SAIZEN [Suspect]
     Active Substance: SOMATROPIN
     Indication: HYPOPITUITARISM
     Route: 058
     Dates: start: 2013, end: 20150306
  2. ALDOSTERONE [Concomitant]
     Active Substance: ALDOSTERONE
     Indication: RENAL FAILURE
  3. EUTHYROX [Concomitant]
     Active Substance: LEVOTHYROXINE SODIUM
     Indication: PRODUCT USED FOR UNKNOWN INDICATION
     Dates: start: 201205
  4. SAIZEN [Suspect]
     Active Substance: SOMATROPIN
     Indication: GROWTH HORMONE DEFICIENCY
     Route: 058
     Dates: start: 20120607

REACTIONS (3)
  - Optic nerve disorder [Unknown]
  - Visual acuity reduced [Unknown]
  - Fibrous dysplasia of bone [Not Recovered/Not Resolved]

NARRATIVE: CASE EVENT DATE: 20150225
